FAERS Safety Report 10457579 (Version 2)
Quarter: 2014Q4

REPORT INFORMATION
  Report Type: Spontaneous
  Country: US (occurrence: US)
  Receive Date: 20140916
  Receipt Date: 20141024
  Transmission Date: 20150528
  Serious: No
  Sender: FDA-Public Use
  Company Number: US-GILEAD-2014-0115335

PATIENT
  Age: 63 Year
  Sex: Male
  Weight: 71.66 kg

DRUGS (8)
  1. ISOSORBIDE [Concomitant]
     Active Substance: ISOSORBIDE
  2. RIBAVIRIN. [Concomitant]
     Active Substance: RIBAVIRIN
     Dosage: 1200 MG, UNK
     Route: 048
  3. LOSARTIN [Concomitant]
     Active Substance: LOSARTAN
  4. PIROSINIDE [Concomitant]
  5. CARVEDILOL. [Concomitant]
     Active Substance: CARVEDILOL
  6. SOVALDI [Suspect]
     Active Substance: SOFOSBUVIR
     Indication: HEPATITIS C
     Dosage: 400 MG, UNK
     Route: 048
     Dates: start: 20140817
  7. FUROSEMIDE. [Concomitant]
     Active Substance: FUROSEMIDE
  8. PLAVIX [Concomitant]
     Active Substance: CLOPIDOGREL BISULFATE

REACTIONS (7)
  - Productive cough [Not Recovered/Not Resolved]
  - Blood pressure increased [Recovered/Resolved]
  - Chest discomfort [Recovered/Resolved]
  - Dyspepsia [Unknown]
  - Back pain [Not Recovered/Not Resolved]
  - Pain in extremity [Unknown]
  - Dyspnoea exertional [Not Recovered/Not Resolved]

NARRATIVE: CASE EVENT DATE: 20140828
